FAERS Safety Report 5274175-9 (Version None)
Quarter: 2007Q1

REPORT INFORMATION
  Report Type: 
  Country: None (occurrence: None)
  Receive Date: 20070323
  Receipt Date: 20070313
  Transmission Date: 20070707
  Serious: Yes (Life-Threatening, Hospitalization)
  Sender: FDA-Public Use
  Company Number: FR-SANOFI-SYNTHELABO-A02200401611

PATIENT
  Sex: Male
  Weight: 84 kg

DRUGS (13)
  1. PLAVIX [Suspect]
     Indication: STENT PLACEMENT
     Dosage: 300 MG LOADING DOSE THEN 75 MG DAILY
     Route: 048
     Dates: start: 20040504, end: 20040512
  2. KARDEGIC [Concomitant]
     Route: 048
     Dates: start: 20040504
  3. CALCIPARINE [Concomitant]
     Route: 058
     Dates: start: 20040501
  4. PRAVASTATIN [Concomitant]
     Route: 048
     Dates: start: 20040501
  5. BEFIZAL [Concomitant]
     Route: 048
     Dates: end: 20040501
  6. CARDENSIEL [Concomitant]
     Route: 048
  7. CAZODEX [Concomitant]
     Route: 048
  8. DESLORATADINE [Concomitant]
     Route: 048
  9. PRAXILENE [Concomitant]
     Route: 048
  10. LEVOTHYROXINE SODIUM [Concomitant]
     Route: 048
  11. OMEPRAZOLE [Concomitant]
     Route: 048
  12. ADANCOR [Concomitant]
     Route: 048
  13. CONTRAMAL [Concomitant]
     Route: 048
     Dates: start: 20040504, end: 20040510

REACTIONS (6)
  - ANAEMIA [None]
  - ATRIOVENTRICULAR BLOCK COMPLETE [None]
  - DRUG INEFFECTIVE FOR UNAPPROVED INDICATION [None]
  - DRUG RESISTANCE [None]
  - STENT OCCLUSION [None]
  - VENTRICULAR FIBRILLATION [None]
